FAERS Safety Report 6466695-6 (Version None)
Quarter: 2009Q4

REPORT INFORMATION
  Report Type: 
  Country: None (occurrence: None)
  Receive Date: 20091202
  Receipt Date: 20091125
  Transmission Date: 20100525
  Serious: Yes (Hospitalization)
  Sender: FDA-Public Use
  Company Number: US-ELI_LILLY_AND_COMPANY-US200910007637

PATIENT
  Sex: Male

DRUGS (11)
  1. ALIMTA [Suspect]
     Indication: NON-SMALL CELL LUNG CANCER
     Dosage: UNK, UNK
     Dates: start: 20091006, end: 20090101
  2. FOLIC ACID [Concomitant]
  3. CYANOCOBALAMIN [Concomitant]
  4. DEXAMETHASONE TAB [Concomitant]
  5. CRESTOR [Concomitant]
  6. ZETIA [Concomitant]
  7. DIOVAN [Concomitant]
  8. ASPIRIN [Concomitant]
  9. CARAFATE [Concomitant]
  10. PRILOSEC [Concomitant]
  11. MEGACE [Concomitant]

REACTIONS (1)
  - HAEMORRHAGE [None]
